FAERS Safety Report 8011840-4 (Version None)
Quarter: 2011Q4

REPORT INFORMATION
  Report Type: 
  Country: None (occurrence: None)
  Receive Date: 20111228
  Receipt Date: 20111223
  Transmission Date: 20120403
  Serious: Yes (Hospitalization)
  Sender: FDA-Public Use
  Company Number: PT-JNJFOC-20111210112

PATIENT
  Sex: Male

DRUGS (2)
  1. TRAMADOL HYDROCHLORIDE [Concomitant]
     Indication: PAIN
     Dosage: 3 DOSES
     Route: 042
  2. HALDOL [Suspect]
     Indication: AGITATION
     Route: 042
     Dates: start: 20111223, end: 20111223

REACTIONS (1)
  - RESPIRATORY DEPRESSION [None]
